FAERS Safety Report 5676448-4 (Version None)
Quarter: 2008Q1

REPORT INFORMATION
  Report Type: 
  Country: None (occurrence: None)
  Receive Date: 20080321
  Receipt Date: 20080311
  Transmission Date: 20080703
  Serious: Yes (Hospitalization)
  Sender: FDA-Public Use
  Company Number: FR-GENENTECH-256638

PATIENT
  Sex: Female
  Weight: 60 kg

DRUGS (12)
  1. MABTHERA [Suspect]
     Indication: RHEUMATOID ARTHRITIS
     Dosage: 1000 MG, UNK
     Route: 042
     Dates: start: 20080129
  2. POLARAMINE [Concomitant]
     Indication: PREMEDICATION
  3. CORTICOSTEROIDS (UNK INGREDIENTS) [Concomitant]
     Indication: PREMEDICATION
  4. IDEOS [Concomitant]
     Indication: DRUG USE FOR UNKNOWN INDICATION
  5. SKENAN [Concomitant]
     Indication: DRUG USE FOR UNKNOWN INDICATION
  6. URISPAS [Concomitant]
     Indication: DRUG USE FOR UNKNOWN INDICATION
  7. METOJECT [Concomitant]
     Indication: DRUG USE FOR UNKNOWN INDICATION
  8. SPECIAFOLDINE [Concomitant]
     Indication: DRUG USE FOR UNKNOWN INDICATION
  9. MOPRAL [Concomitant]
     Indication: DRUG USE FOR UNKNOWN INDICATION
  10. KETOPROFEN [Concomitant]
     Indication: DRUG USE FOR UNKNOWN INDICATION
  11. DEBRIDAT [Concomitant]
     Indication: DRUG USE FOR UNKNOWN INDICATION
  12. HEXAQUINE [Concomitant]
     Indication: DRUG USE FOR UNKNOWN INDICATION

REACTIONS (4)
  - DEPRESSED LEVEL OF CONSCIOUSNESS [None]
  - ERYTHEMA [None]
  - PARAESTHESIA [None]
  - TACHYCARDIA [None]
